FAERS Safety Report 4840047-4 (Version None)
Quarter: 2005Q4

REPORT INFORMATION
  Report Type: 
  Country: None (occurrence: None)
  Receive Date: 20051125
  Receipt Date: 20051110
  Transmission Date: 20060501
  Serious: Yes (Hospitalization)
  Sender: FDA-Public Use
  Company Number: 2005-09-1274

PATIENT
  Age: 11 Year
  Sex: Male

DRUGS (1)
  1. AERIUS (DESLORATADINE) SYRUP   ^CLARINEX^ [Suspect]
     Indication: ASTHMA
     Dosage: ORAL
     Route: 048
     Dates: start: 20050401, end: 20050901

REACTIONS (2)
  - DIPLOPIA [None]
  - VERTIGO [None]
